FAERS Safety Report 4596617-4 (Version None)
Quarter: 2005Q2

REPORT INFORMATION
  Report Type: 
  Country: None (occurrence: None)
  Receive Date: 20050228
  Receipt Date: 20050214
  Transmission Date: 20051028
  Serious: Yes (Life-Threatening, Hospitalization, Other)
  Sender: FDA-Public Use
  Company Number: 2004107203

PATIENT
  Age: 21 Year
  Sex: Female

DRUGS (8)
  1. ZITHROMAX [Suspect]
     Indication: LARYNGOPHARYNGITIS
     Dosage: 500 MG (500 MG, 1 IN 1 D), ORAL
     Route: 048
     Dates: start: 20041202, end: 20041202
  2. LOXOPROFEN SODIUM            (LOXOPROFEN SODIUM) [Concomitant]
     Indication: UPPER RESPIRATORY TRACT INFLAMMATION
     Dosage: 180 MG (60 MG, 3 IN 1 D), ORAL
     Route: 048
     Dates: start: 20041202, end: 20041204
  3. MACROLIDES          (MACROLIDES) [Concomitant]
     Indication: UPPER RESPIRATORY TRACT INFLAMMATION
     Dosage: ORAL
     Route: 048
     Dates: start: 20041202, end: 20041204
  4. TEPRENONE (TEPRENONE) [Concomitant]
     Indication: GASTRITIS
     Dosage: 150 MG (50 MG, 3 IN 1 D), ORAL
     Route: 048
     Dates: start: 20041202, end: 20041204
  5. TOWATHIEN (CAFFEINE, PARACETAMOL, PROMETHAZINE, SALICYLAMIDE) [Suspect]
     Indication: UPPER RESPIRATORY TRACT INFLAMMATION
     Dosage: 3 GRAM (1 GRAM , 3 IN 1 D), ORAL
     Route: 048
     Dates: start: 20041202, end: 20041204
  6. SOLITA-T (ELECTROLYTES NOS) [Concomitant]
  7. AZULENE (AZULENE) [Concomitant]
  8. ASCORBIC ACID [Concomitant]

REACTIONS (14)
  - ALANINE AMINOTRANSFERASE INCREASED [None]
  - ASPARTATE AMINOTRANSFERASE INCREASED [None]
  - CITROBACTER INFECTION [None]
  - DRUG HYPERSENSITIVITY [None]
  - HEPATIC FUNCTION ABNORMAL [None]
  - ORAL CANDIDIASIS [None]
  - PRODUCTIVE COUGH [None]
  - PRURITUS [None]
  - SPUTUM CULTURE POSITIVE [None]
  - STAPHYLOCOCCAL INFECTION [None]
  - STEVENS-JOHNSON SYNDROME [None]
  - TOXIC EPIDERMAL NECROLYSIS [None]
  - VAGINAL CANDIDIASIS [None]
  - WOUND INFECTION STAPHYLOCOCCAL [None]
